FAERS Safety Report 17178478 (Version 1)
Quarter: 2019Q4

REPORT INFORMATION
  Report Type: Report from Study
  Country: US (occurrence: US)
  Receive Date: 20191219
  Receipt Date: 20191219
  Transmission Date: 20200122
  Serious: Yes (Other)
  Sender: FDA-Public Use
  Company Number: US-BIOGEN-2019BI00812661

PATIENT
  Sex: Female

DRUGS (1)
  1. TYSABRI [Suspect]
     Active Substance: NATALIZUMAB
     Indication: MULTIPLE SCLEROSIS
     Dosage: INFUSED FOR OVER 1 HOUR
     Route: 042
     Dates: start: 20191024

REACTIONS (11)
  - Feeling abnormal [Recovered/Resolved]
  - Seizure like phenomena [Recovered/Resolved]
  - Fatigue [Unknown]
  - Sensory disturbance [Recovered/Resolved with Sequelae]
  - Oral herpes [Not Recovered/Not Resolved]
  - Asthenia [Recovered/Resolved]
  - Oropharyngeal pain [Unknown]
  - Dizziness [Recovered/Resolved]
  - Pruritus [Unknown]
  - Leukoplakia oral [Recovered/Resolved]
  - Throat irritation [Recovered/Resolved]
